FAERS Safety Report 22825732 (Version 3)
Quarter: 2023Q4

REPORT INFORMATION
  Report Type: Spontaneous
  Country: KR (occurrence: KR)
  Receive Date: 20230816
  Receipt Date: 20231205
  Transmission Date: 20240109
  Serious: Yes (Other)
  Sender: FDA-Public Use
  Company Number: KR-009507513-2308KOR004858

PATIENT
  Age: 53 Year
  Sex: Female
  Weight: 55.8 kg

DRUGS (6)
  1. PEMBROLIZUMAB [Suspect]
     Active Substance: PEMBROLIZUMAB
     Indication: Endometrial cancer
     Dosage: 200 MILLIGRAM
     Route: 042
     Dates: start: 20230209, end: 20230209
  2. PEMBROLIZUMAB [Suspect]
     Active Substance: PEMBROLIZUMAB
     Dosage: 200 MILLIGRAM
     Route: 042
     Dates: start: 20230303, end: 20230303
  3. PEMBROLIZUMAB [Suspect]
     Active Substance: PEMBROLIZUMAB
     Dosage: 200 MILLIGRAM
     Route: 042
     Dates: start: 20230324, end: 20230324
  4. LENVATINIB MESYLATE [Suspect]
     Active Substance: LENVATINIB MESYLATE
     Indication: Endometrial cancer
     Dosage: TOTAL DAILY DOSE 20 MILLIGRAM/ 1 DAY
     Route: 048
     Dates: start: 20230209, end: 20230413
  5. CHLORPHENIRAMINE MALEATE HUONS [Concomitant]
     Indication: Prophylaxis
     Dosage: 8 MILLIGRAM, QD (/ 1 DAY)
     Route: 042
     Dates: start: 20230209, end: 20230209
  6. DONG A GASTER [Concomitant]
     Indication: Prophylaxis
     Dosage: TOTAL DAILY DOSE: 1 TABLET (20 MG)
     Route: 048
     Dates: start: 20230209

REACTIONS (9)
  - Hydronephrosis [Not Recovered/Not Resolved]
  - Malignant neoplasm progression [Unknown]
  - Pyrexia [Recovered/Resolved]
  - Back pain [Recovered/Resolved]
  - Aspartate aminotransferase increased [Recovered/Resolved]
  - Alanine aminotransferase increased [Recovered/Resolved]
  - Weight decreased [Recovering/Resolving]
  - Gamma-glutamyltransferase increased [Recovered/Resolved]
  - Inappropriate schedule of product administration [Unknown]

NARRATIVE: CASE EVENT DATE: 20230212
